FAERS Safety Report 7303036-6 (Version None)
Quarter: 2011Q1

REPORT INFORMATION
  Report Type: 
  Country: None (occurrence: None)
  Receive Date: 20110221
  Receipt Date: 20110211
  Transmission Date: 20110831
  Serious: Yes (Other)
  Sender: FDA-Public Use
  Company Number: 2007BI004597

PATIENT
  Age: 58 Year
  Sex: Female

DRUGS (10)
  1. AVONEX [Suspect]
     Route: 030
     Dates: start: 20080227
  2. ^TIALOT^ (NOS) [Concomitant]
  3. LEXAPRO [Concomitant]
  4. ^TIMAHLMAINSTS^ (NOS) [Concomitant]
  5. AVONEX [Suspect]
     Route: 030
     Dates: start: 20070307, end: 20071107
  6. REFRESH [Concomitant]
  7. REFRESH [Concomitant]
  8. AVONEX [Suspect]
     Indication: MULTIPLE SCLEROSIS
     Route: 030
     Dates: start: 19981116, end: 20030101
  9. AVONEX [Suspect]
     Route: 030
     Dates: start: 20030101, end: 20061101
  10. ^ALTROMES^ (NOS) [Concomitant]

REACTIONS (7)
  - HEPATITIS C [None]
  - DEMENTIA ALZHEIMER'S TYPE [None]
  - BLINDNESS UNILATERAL [None]
  - HYPERTENSION [None]
  - ANAEMIA [None]
  - LENTIGO [None]
  - URINARY INCONTINENCE [None]
